FAERS Safety Report 4953056-1 (Version None)
Quarter: 2006Q1

REPORT INFORMATION
  Report Type: 
  Country: None (occurrence: None)
  Receive Date: 20060324
  Receipt Date: 20060217
  Transmission Date: 20060701
  Serious: Yes (Hospitalization)
  Sender: FDA-Public Use
  Company Number: FR-AMGEN-UK169512

PATIENT
  Sex: Female
  Weight: 75 kg

DRUGS (8)
  1. CINACALCET [Suspect]
     Indication: HYPERPARATHYROIDISM SECONDARY
     Route: 048
     Dates: start: 20041201
  2. PLAVIX [Concomitant]
     Route: 048
  3. LEVOTHYROX [Concomitant]
     Route: 048
  4. MOPRAL [Concomitant]
     Route: 048
  5. TAHOR [Concomitant]
     Route: 048
  6. ZYLORIC [Concomitant]
     Route: 065
  7. CLARITIN [Concomitant]
     Route: 048
  8. ASPIRIN [Concomitant]
     Route: 048

REACTIONS (3)
  - HYPOTENSION [None]
  - POST PROCEDURAL COMPLICATION [None]
  - TROPONIN INCREASED [None]
